FAERS Safety Report 4855414-2 (Version None)
Quarter: 2005Q4

REPORT INFORMATION
  Report Type: 
  Country: None (occurrence: None)
  Receive Date: 20051125
  Receipt Date: 20050510
  Transmission Date: 20060501
  Serious: Yes (Life-Threatening, Hospitalization)
  Sender: FDA-Public Use
  Company Number: US-JNJFOC-20050302013

PATIENT
  Age: 72 Year
  Sex: Female
  Weight: 108.4097 kg

DRUGS (5)
  1. LEVAQUIN [Suspect]
     Indication: BRONCHITIS
     Dosage: 500 MG, 1 IN 1 DAY, ORAL
     Route: 048
     Dates: start: 20050304, end: 20050304
  2. AVELOX [Suspect]
     Indication: DRUG USE FOR UNKNOWN INDICATION
     Dosage: 400 MG, 1 IN 1 DAY
     Dates: start: 20050303
  3. TOPROL-XL [Concomitant]
  4. PROCARDIA XL [Concomitant]
  5. ZOCOR [Concomitant]

REACTIONS (1)
  - ANAPHYLACTIC REACTION [None]
